FAERS Safety Report 16341225 (Version 1)
Quarter: 2019Q2

REPORT INFORMATION
  Report Type: Report from Study
  Country: None (occurrence: AR)
  Receive Date: 20190522
  Receipt Date: 20190522
  Transmission Date: 20190711
  Serious: Yes (Death)
  Sender: FDA-Public Use
  Company Number: AR-ABBVIE-19K-007-2792175-00

PATIENT
  Age: 68 Year
  Sex: Male

DRUGS (1)
  1. HUMIRA [Suspect]
     Active Substance: ADALIMUMAB
     Indication: CROHN^S DISEASE
     Route: 058
     Dates: start: 20120719

REACTIONS (1)
  - Intracranial aneurysm [Fatal]

NARRATIVE: CASE EVENT DATE: 201904
